FAERS Safety Report 9306996 (Version 7)
Quarter: 2017Q2

REPORT INFORMATION
  Report Type: Spontaneous
  Country: US (occurrence: US)
  Receive Date: 20130523
  Receipt Date: 20170526
  Transmission Date: 20170830
  Serious: Yes (Disabling, Other)
  Sender: FDA-Public Use
  Company Number: US-009507513-1305USA011621

PATIENT
  Sex: Male
  Weight: 96.6 kg

DRUGS (6)
  1. FLUOXETINE [Concomitant]
     Active Substance: FLUOXETINE HYDROCHLORIDE
     Indication: DEPRESSION
     Dosage: 20 MG, QAM
     Route: 048
  2. PROPECIA [Suspect]
     Active Substance: FINASTERIDE
     Indication: ALOPECIA
     Dosage: 1 MG, UNK
     Route: 048
     Dates: start: 20090206, end: 20091210
  3. FINASTERIDE. [Suspect]
     Active Substance: FINASTERIDE
     Indication: BENIGN PROSTATIC HYPERPLASIA
     Dosage: 5 MG, QD
     Route: 048
     Dates: start: 20100127
  4. XANAX [Concomitant]
     Active Substance: ALPRAZOLAM
     Indication: ANXIETY
     Dosage: UNK
     Route: 065
     Dates: start: 2006, end: 2013
  5. ALPRAZOLAM. [Concomitant]
     Active Substance: ALPRAZOLAM
     Indication: ANXIETY
     Dosage: 1 MG, UNK
     Route: 065
  6. LORATADINE. [Concomitant]
     Active Substance: LORATADINE
     Indication: HYPERSENSITIVITY
     Dosage: 10 MG, UNK
     Route: 048

REACTIONS (54)
  - Splenomegaly [Unknown]
  - Affective disorder [Unknown]
  - Raynaud^s phenomenon [Unknown]
  - Neuropathy peripheral [Unknown]
  - Testicular pain [Unknown]
  - Azoospermia [Unknown]
  - Painful ejaculation [Unknown]
  - Penis injury [Unknown]
  - Depression [Unknown]
  - Prostatic specific antigen increased [Unknown]
  - Semen volume decreased [Unknown]
  - Neck surgery [Unknown]
  - Seizure [Unknown]
  - Hypoaesthesia [Unknown]
  - Hypercholesterolaemia [Unknown]
  - Sexual dysfunction [Not Recovered/Not Resolved]
  - Intervertebral disc degeneration [Not Recovered/Not Resolved]
  - Hypertension [Unknown]
  - Type 2 diabetes mellitus [Unknown]
  - Neck pain [Unknown]
  - Substance use disorder [Unknown]
  - Dyspnoea [Unknown]
  - Narcolepsy [Unknown]
  - Spermatozoa progressive motility abnormal [Unknown]
  - Infertility male [Unknown]
  - Peripheral swelling [Unknown]
  - Sinus disorder [Unknown]
  - Anxiety [Unknown]
  - Hepatomegaly [Unknown]
  - Muscle spasms [Unknown]
  - Angioedema [Unknown]
  - Genital disorder male [Unknown]
  - Hypogonadism male [Not Recovered/Not Resolved]
  - Penile size reduced [Unknown]
  - Brain injury [Unknown]
  - Influenza [Unknown]
  - Upper respiratory tract infection [Unknown]
  - Hepatic steatosis [Unknown]
  - Renal disorder [Unknown]
  - Frostbite [Unknown]
  - Musculoskeletal pain [Unknown]
  - Ejaculation delayed [Unknown]
  - Adverse reaction [Unknown]
  - Viral upper respiratory tract infection [Unknown]
  - Spinal operation [Unknown]
  - Hormone level abnormal [Unknown]
  - Pain in extremity [Unknown]
  - Gastrooesophageal reflux disease [Unknown]
  - Gastric ulcer [Unknown]
  - Erectile dysfunction [Not Recovered/Not Resolved]
  - Libido decreased [Unknown]
  - Asthma [Unknown]
  - Cough [Unknown]
  - Post laminectomy syndrome [Unknown]

NARRATIVE: CASE EVENT DATE: 200905
